FAERS Safety Report 6541415-5 (Version None)
Quarter: 2010Q1

REPORT INFORMATION
  Report Type: 
  Country: None (occurrence: None)
  Receive Date: 20100118
  Receipt Date: 20100108
  Transmission Date: 20100710
  Serious: Yes (Death, Other)
  Sender: FDA-Public Use
  Company Number: CA-ABBOTT-09P-028-0605439-00

PATIENT
  Sex: Male
  Weight: 75.818 kg

DRUGS (4)
  1. LUPRON DEPOT [Suspect]
     Indication: PROSTATE CANCER
     Dates: start: 20090424, end: 20091023
  2. ASAPHEN [Concomitant]
     Indication: DRUG USE FOR UNKNOWN INDICATION
  3. NOVO ATENOLOL [Concomitant]
     Indication: DRUG USE FOR UNKNOWN INDICATION
  4. GOUT MEDICATION [Concomitant]
     Indication: DRUG USE FOR UNKNOWN INDICATION

REACTIONS (6)
  - ASPIRATION [None]
  - BEDRIDDEN [None]
  - HEART RATE DECREASED [None]
  - HYPOPHAGIA [None]
  - PNEUMONIA [None]
  - PROSTATE CANCER METASTATIC [None]
